FAERS Safety Report 8210763-5 (Version None)
Quarter: 2012Q1

REPORT INFORMATION
  Report Type: 
  Country: None (occurrence: None)
  Receive Date: 20120315
  Receipt Date: 20100204
  Transmission Date: 20120608
  Serious: No
  Sender: FDA-Public Use
  Company Number: 2010BI004299

PATIENT
  Age: 54 Year
  Sex: Female

DRUGS (1)
  1. TYSABRI [Suspect]
     Indication: MULTIPLE SCLEROSIS
     Route: 042
     Dates: start: 20080313

REACTIONS (6)
  - PERONEAL NERVE PALSY [None]
  - DIABETES MELLITUS [None]
  - FATIGUE [None]
  - HYPERTONIC BLADDER [None]
  - MOBILITY DECREASED [None]
  - URINARY TRACT INFECTION [None]
